FAERS Safety Report 6762264-9 (Version None)
Quarter: 2010Q2

REPORT INFORMATION
  Report Type: 
  Country: None (occurrence: None)
  Receive Date: 20100609
  Receipt Date: 20100602
  Transmission Date: 20101027
  Serious: Yes (Death)
  Sender: FDA-Public Use
  Company Number: US-SANOFI-AVENTIS-2010SA032207

PATIENT
  Age: 80 Year
  Sex: Male

DRUGS (5)
  1. PLAVIX [Suspect]
     Indication: ANTICOAGULANT THERAPY
     Route: 048
     Dates: start: 20050101, end: 20100515
  2. RANOLAZINE [Concomitant]
     Indication: CARDIAC DISORDER
  3. GLIMEPIRIDE [Concomitant]
  4. ASPIRIN [Concomitant]
     Route: 048
     Dates: start: 20050101, end: 20090101
  5. ASPIRIN [Concomitant]
     Route: 048
     Dates: start: 20090101, end: 20100515

REACTIONS (1)
  - DISEASE PROGRESSION [None]
